FAERS Safety Report 7585890-6 (Version None)
Quarter: 2011Q3

REPORT INFORMATION
  Report Type: 
  Country: None (occurrence: None)
  Receive Date: 20110701
  Receipt Date: 20110617
  Transmission Date: 20111222
  Serious: Yes (Other)
  Sender: FDA-Public Use
  Company Number: AT-BAYER-2011-052383

PATIENT
  Age: 15 Year
  Sex: Female

DRUGS (1)
  1. ESTRADIOL VALERATE/DIENOGEST [Suspect]
     Indication: CONTRACEPTION
     Dosage: UNK

REACTIONS (3)
  - BENIGN HYDATIDIFORM MOLE [None]
  - ECTOPIC PREGNANCY [None]
  - HUMAN CHORIONIC GONADOTROPIN INCREASED [None]
